FAERS Safety Report 5933167-4 (Version None)
Quarter: 2008Q4

REPORT INFORMATION
  Report Type: 
  Country: None (occurrence: None)
  Receive Date: 20081028
  Receipt Date: 20080930
  Transmission Date: 20090506
  Serious: Yes (Life-Threatening, Other)
  Sender: FDA-Public Use
  Company Number: US-BAYER-200813930BCC

PATIENT
  Age: 40 Year
  Sex: Male
  Weight: 132 kg

DRUGS (1)
  1. ALKA-SELTZER PLUS EFFERVESCENT [Suspect]
     Indication: NASOPHARYNGITIS
     Dosage: TOTAL DAILY DOSE: 2 DF  UNIT DOSE: 1 DF
     Route: 048
     Dates: start: 20080928, end: 20080928

REACTIONS (7)
  - ANAPHYLACTIC SHOCK [None]
  - BLOOD PRESSURE DECREASED [None]
  - HEADACHE [None]
  - HYPOPHAGIA [None]
  - LIP SWELLING [None]
  - PALLOR [None]
  - URTICARIA [None]
